FAERS Safety Report 19959200 (Version 1)
Quarter: 2021Q4

REPORT INFORMATION
  Report Type: Spontaneous
  Country: PL (occurrence: PL)
  Receive Date: 20211015
  Receipt Date: 20211015
  Transmission Date: 20220303
  Serious: Yes (Other)
  Sender: FDA-Public Use
  Company Number: PL-UCBSA-2021025855

PATIENT
  Age: 47 Year
  Sex: Male

DRUGS (5)
  1. LEVETIRACETAM [Suspect]
     Active Substance: LEVETIRACETAM
     Indication: Epilepsy
     Dosage: 2750 MILLIGRAM, QD (1250 MG IN MORNING AND 1500 MG IN EVENING)
  2. LEVETIRACETAM [Suspect]
     Active Substance: LEVETIRACETAM
     Dosage: 2500 MILLIGRAM, QD(1250 MILLIGRAM, 2X/DAY (BID)
  3. TRILEPTAL [Concomitant]
     Active Substance: OXCARBAZEPINE
     Indication: Epilepsy
     Dosage: 1800 MILLIGRAM, QD (900 MILLIGRAM, 2X/DAY (BID)
  4. TRILEPTAL [Concomitant]
     Active Substance: OXCARBAZEPINE
     Dosage: 1500 MILLIGRAM, QD(600 MG IN MORMING 900 MG IN EVENING)
  5. SABRIL [Concomitant]
     Active Substance: VIGABATRIN
     Indication: Epilepsy
     Dosage: 1000 MILLIGRAM, QD (500 MILLIGRAM, 2X/DAY (BID)

REACTIONS (6)
  - Seizure [Recovering/Resolving]
  - Suicidal ideation [Unknown]
  - Skin reaction [Unknown]
  - Depressed mood [Unknown]
  - Decreased appetite [Unknown]
  - Off label use [Unknown]
